FAERS Safety Report 8965225 (Version 1)
Quarter: 2012Q4

REPORT INFORMATION
  Report Type: 
  Country: US (occurrence: US)
  Receive Date: 20121213
  Receipt Date: 20121213
  Transmission Date: 20130627
  Serious: No
  Sender: FDA-Public Use
  Company Number: US-BRISTOL-MYERS SQUIBB COMPANY-16790925

PATIENT
  Age: 75 Year
  Sex: Female

DRUGS (1)
  1. IXEMPRA [Suspect]

REACTIONS (2)
  - Chest discomfort [Unknown]
  - Flushing [Unknown]
